FAERS Safety Report 9323527 (Version 5)
Quarter: 2014Q2

REPORT INFORMATION
  Report Type: Spontaneous
  Country: US (occurrence: US)
  Receive Date: 20130603
  Receipt Date: 20140507
  Transmission Date: 20141212
  Serious: Yes (Death)
  Sender: FDA-Public Use
  Company Number: US-PFIZER INC-2013164598

PATIENT
  Age: 89 Year
  Sex: Female

DRUGS (4)
  1. XALKORI [Suspect]
     Indication: LUNG NEOPLASM MALIGNANT
     Dosage: 250 MG, 2X/DAY
     Route: 048
     Dates: start: 20130508, end: 20131220
  2. DYAZIDE [Concomitant]
     Dosage: HYDROCHLOROTHIAZIDE 25 MG/ TRIAMTERENE 37.5 MG, UNK
  3. PRAVASTATIN [Concomitant]
     Dosage: 20 MG, UNK
  4. LEVOTHYROXINE [Concomitant]
     Dosage: 25 UG, UNK

REACTIONS (5)
  - Disease progression [Fatal]
  - Lung neoplasm malignant [Fatal]
  - Erythema [Unknown]
  - Oedema peripheral [Not Recovered/Not Resolved]
  - Eyelid oedema [Not Recovered/Not Resolved]
